FAERS Safety Report 17684698 (Version 1)
Quarter: 2020Q2

REPORT INFORMATION
  Report Type: Report from Study
  Country: IT (occurrence: IT)
  Receive Date: 20200420
  Receipt Date: 20200420
  Transmission Date: 20200714
  Serious: Yes (Hospitalization)
  Sender: FDA-Public Use
  Company Number: IT-TEVA-2020-IT-1225225

PATIENT
  Age: 25 Year
  Sex: Female

DRUGS (2)
  1. QUETIAPINE. [Suspect]
     Active Substance: QUETIAPINE
     Indication: INTENTIONAL SELF-INJURY
     Dosage: 25 MG
     Route: 048
     Dates: start: 20200211, end: 20200211
  2. ACETYLSALICYLIC ACID [Suspect]
     Active Substance: ASPIRIN
     Indication: INTENTIONAL SELF-INJURY
     Dosage: 10 GM
     Route: 048
     Dates: start: 20200211, end: 20200211

REACTIONS (4)
  - Drug abuse [Recovering/Resolving]
  - Vomiting [Recovering/Resolving]
  - Intentional self-injury [Recovering/Resolving]
  - Headache [Recovering/Resolving]

NARRATIVE: CASE EVENT DATE: 20200212
